FAERS Safety Report 5964370-5 (Version None)
Quarter: 2008Q4

REPORT INFORMATION
  Report Type: 
  Country: None (occurrence: None)
  Receive Date: 20081124
  Receipt Date: 20081112
  Transmission Date: 20090506
  Serious: Yes (Hospitalization)
  Sender: FDA-Public Use
  Company Number: JP-PFIZER INC-2008094227

PATIENT
  Sex: Male

DRUGS (2)
  1. SUTENT [Suspect]
     Indication: RENAL CELL CARCINOMA
     Route: 048
     Dates: start: 20081021, end: 20081031
  2. AMLODIN [Concomitant]
     Route: 048
     Dates: start: 20081023, end: 20081108

REACTIONS (5)
  - C-REACTIVE PROTEIN INCREASED [None]
  - HEPATIC FUNCTION ABNORMAL [None]
  - HYPERTENSION [None]
  - PLATELET COUNT DECREASED [None]
  - PYREXIA [None]
